FAERS Safety Report 7586562-4 (Version None)
Quarter: 2011Q3

REPORT INFORMATION
  Report Type: 
  Country: None (occurrence: None)
  Receive Date: 20110701
  Receipt Date: 20110627
  Transmission Date: 20111222
  Serious: Yes (Hospitalization, Other)
  Sender: FDA-Public Use
  Company Number: US-B.I. PHARMACEUTICALS,INC./RIDGEFIELD-2011-BP-16382BP

PATIENT
  Age: 58 Year
  Sex: Male

DRUGS (7)
  1. TOPROL-XL [Concomitant]
     Indication: HYPERTENSION
     Dosage: 200 MG
  2. FUROSEMIDE [Concomitant]
     Indication: HYPERTENSION
     Dosage: 20 MG
  3. MULTI-VITAMIN [Concomitant]
     Indication: SUPPLEMENTATION THERAPY
  4. WARFARIN SODIUM [Concomitant]
     Indication: PROPHYLAXIS
  5. DOXYSASINE [Concomitant]
     Indication: HYPERTENSION
     Dosage: 16 MG
  6. MICARDIS [Suspect]
     Indication: HYPERTENSION
     Dosage: 80 MG
     Route: 048
     Dates: start: 20060101
  7. ASPIRIN [Concomitant]
     Indication: PROPHYLAXIS

REACTIONS (3)
  - PALPITATIONS [None]
  - ANGINA PECTORIS [None]
  - AORTIC VALVE DISEASE [None]
